FAERS Safety Report 7488625-0 (Version None)
Quarter: 2011Q2

REPORT INFORMATION
  Report Type: 
  Country: None (occurrence: None)
  Receive Date: 20110518
  Receipt Date: 20110510
  Transmission Date: 20111010
  Serious: Yes (Hospitalization)
  Sender: FDA-Public Use
  Company Number: A0850497A

PATIENT
  Age: 52 Year
  Sex: Female
  Weight: 104 kg

DRUGS (13)
  1. SIMVASTATIN [Concomitant]
  2. BUFFERIN [Concomitant]
  3. DIOVAN [Concomitant]
  4. AVANDIA [Suspect]
     Indication: DIABETES MELLITUS
     Dosage: 4MG PER DAY
     Route: 048
     Dates: start: 20020501, end: 20070401
  5. FLEXERIL [Concomitant]
  6. LIPITOR [Concomitant]
  7. GLUCOPHAGE [Concomitant]
  8. AVANDAMET [Suspect]
     Indication: DIABETES MELLITUS
     Route: 048
     Dates: start: 20070501, end: 20070901
  9. ACIPHEX [Concomitant]
  10. COMBIVENT [Concomitant]
  11. GLIPIZIDE [Concomitant]
  12. MOTRIN [Concomitant]
  13. ACCUPRIL [Concomitant]

REACTIONS (3)
  - CORONARY ARTERY DISEASE [None]
  - MYOCARDIAL INFARCTION [None]
  - ISCHAEMIC CARDIOMYOPATHY [None]
